FAERS Safety Report 10196580 (Version 1)
Quarter: 2014Q2

REPORT INFORMATION
  Report Type: Spontaneous
  Country: NO (occurrence: NO)
  Receive Date: 20140527
  Receipt Date: 20140527
  Transmission Date: 20141212
  Serious: Yes (Death, Hospitalization, Other)
  Sender: FDA-Public Use
  Company Number: NO-009507513-1405NOR011004

PATIENT
  Sex: Female

DRUGS (4)
  1. EZETROL [Suspect]
     Dosage: 10 MG, QD(10 MG X1)
     Dates: start: 20080602
  2. PLAVIX [Concomitant]
     Dosage: 75 MG, QD
  3. SORBANGIL [Concomitant]
     Dosage: 10 MG, QD
  4. UNILOC [Concomitant]
     Dosage: 50 MG, QD

REACTIONS (31)
  - Death [Fatal]
  - Cardiac failure [Unknown]
  - Pulmonary embolism [Unknown]
  - Haematochezia [Unknown]
  - Rectal cancer [Unknown]
  - Cancer surgery [Unknown]
  - Hepatic cancer metastatic [Unknown]
  - Surgery [Unknown]
  - Metastases to lung [Unknown]
  - Metastases to lymph nodes [Unknown]
  - Malaise [Unknown]
  - Ischaemia [Unknown]
  - Burning sensation [Unknown]
  - Pain in extremity [Unknown]
  - Angina pectoris [Unknown]
  - Oropharyngeal pain [Unknown]
  - Neck pain [Unknown]
  - Dyspnoea [Unknown]
  - Hypertension [Unknown]
  - Osteoarthritis [Unknown]
  - Deep vein thrombosis [Unknown]
  - Change of bowel habit [Unknown]
  - Haemorrhoids [Unknown]
  - Laparoscopic surgery [Unknown]
  - Neoadjuvant therapy [Unknown]
  - Thrombosis [Unknown]
  - Heart rate increased [Unknown]
  - Paraesthesia [Unknown]
  - Chest pain [Unknown]
  - Headache [Unknown]
  - Abdominal pain [Unknown]
